FAERS Safety Report 8828247 (Version 1)
Quarter: 2012Q4

REPORT INFORMATION
  Report Type: 
  Country: DE (occurrence: DE)
  Receive Date: 20121008
  Receipt Date: 20121008
  Transmission Date: 20130627
  Serious: Yes (Other)
  Sender: FDA-Public Use
  Company Number: PHHY2012DE087882

PATIENT
  Sex: Male

DRUGS (1)
  1. ESTRADOT [Suspect]
     Indication: POSTPARTUM HAEMORRHAGE
     Dosage: 2 DF, ONCE/SINGLE
     Dates: start: 20120926, end: 20121002

REACTIONS (4)
  - Mastitis [Not Recovered/Not Resolved]
  - Breast pain [Not Recovered/Not Resolved]
  - Feeling hot [Not Recovered/Not Resolved]
  - Exposure during breast feeding [Recovered/Resolved]
